FAERS Safety Report 12963296 (Version 4)
Quarter: 2017Q1

REPORT INFORMATION
  Report Type: Spontaneous
  Country: JP (occurrence: JP)
  Receive Date: 20161122
  Receipt Date: 20170215
  Transmission Date: 20170428
  Serious: Yes (Hospitalization)
  Sender: FDA-Public Use
  Company Number: JP-CONCORDIA PHARMACEUTICALS INC.-GSH201611-005889

PATIENT
  Age: 64 Year
  Sex: Male

DRUGS (2)
  1. KAYEXALATE [Suspect]
     Active Substance: SODIUM POLYSTYRENE SULFONATE
     Indication: HYPERKALAEMIA
     Route: 048
     Dates: start: 20160307, end: 20160308
  2. CALCIUM GLUCONATE HYDRATE [Concomitant]

REACTIONS (1)
  - Rectal ulcer haemorrhage [Recovering/Resolving]

NARRATIVE: CASE EVENT DATE: 201603
